FAERS Safety Report 7406376-5 (Version None)
Quarter: 2011Q2

REPORT INFORMATION
  Report Type: 
  Country: None (occurrence: None)
  Receive Date: 20110411
  Receipt Date: 20110401
  Transmission Date: 20111010
  Serious: Yes (Other)
  Sender: FDA-Public Use
  Company Number: US-ASTRAZENECA-2011SE18645

PATIENT
  Age: 481 Month
  Sex: Male
  Weight: 74.8 kg

DRUGS (1)
  1. ATACAND [Suspect]
     Indication: HYPERTENSION
     Route: 048
     Dates: start: 20101101

REACTIONS (2)
  - VARICELLA [None]
  - CHEST PAIN [None]
